FAERS Safety Report 8554138-8 (Version None)
Quarter: 2012Q3

REPORT INFORMATION
  Report Type: 
  Country: None (occurrence: None)
  Receive Date: 20120731
  Receipt Date: 20120727
  Transmission Date: 20120928
  Serious: Yes (Other)
  Sender: FDA-Public Use
  Company Number: PHHY2012BR065624

PATIENT
  Sex: Male
  Weight: 89 kg

DRUGS (4)
  1. PENICILLIN [Suspect]
     Dosage: 500 MG, Q12H
     Dates: start: 20050101
  2. CATAFLAM [Suspect]
     Indication: TOOTH EXTRACTION
     Dosage: 50 MG, Q8H
     Dates: start: 20050101
  3. CATAFLAM [Suspect]
     Dosage: 50 MG, Q8H
     Route: 048
     Dates: start: 20120726, end: 20120727
  4. CATAFLAM [Suspect]
     Indication: ORAL PAIN
     Dosage: 50 MG, BID
     Route: 048
     Dates: start: 20120725

REACTIONS (7)
  - NASAL DISCOMFORT [None]
  - ORAL PAIN [None]
  - RHINALGIA [None]
  - NASOPHARYNGITIS [None]
  - EPISTAXIS [None]
  - THROMBOSIS [None]
  - RHINORRHOEA [None]
